FAERS Safety Report 13415767 (Version 4)
Quarter: 2017Q2

REPORT INFORMATION
  Report Type: Spontaneous
  Country: SI (occurrence: SI)
  Receive Date: 20170407
  Receipt Date: 20170417
  Transmission Date: 20170830
  Serious: Yes (Death)
  Sender: FDA-Public Use
  Company Number: SI-UNITED THERAPEUTICS-UNT-2017-004778

PATIENT
  Age: 78 Year
  Sex: Female

DRUGS (1)
  1. REMODULIN [Suspect]
     Active Substance: TREPROSTINIL
     Indication: PULMONARY ARTERIAL HYPERTENSION
     Dosage: UNK
     Route: 058
     Dates: start: 201606, end: 201703

REACTIONS (2)
  - Urinary tract infection [Unknown]
  - Systemic scleroderma [Fatal]

NARRATIVE: CASE EVENT DATE: 201703
